FAERS Safety Report 23920254 (Version 7)
Quarter: 2025Q2

REPORT INFORMATION
  Report Type: Report from Study
  Country: CA (occurrence: CA)
  Receive Date: 20240530
  Receipt Date: 20250402
  Transmission Date: 20250717
  Serious: Yes (Hospitalization, Other)
  Sender: GLAXOSMITHKLINE
  Company Number: CA-GLAXOSMITHKLINE-CA2024022492

PATIENT

DRUGS (4)
  1. BELIMUMAB [Suspect]
     Active Substance: BELIMUMAB
     Indication: Systemic lupus erythematosus
     Dosage: 400 MG, WE
     Route: 058
     Dates: start: 20190628
  2. BELIMUMAB [Suspect]
     Active Substance: BELIMUMAB
     Dosage: 200 MG, WE
     Route: 058
  3. METFORMIN [Suspect]
     Active Substance: METFORMIN HYDROCHLORIDE
     Indication: Glucose tolerance impaired
  4. PREDNISOLONE [Concomitant]
     Active Substance: PREDNISOLONE
     Indication: Product used for unknown indication

REACTIONS (27)
  - Brain operation [Unknown]
  - Pneumonia [Unknown]
  - Cerebrovascular accident [Unknown]
  - Diabetes mellitus [Not Recovered/Not Resolved]
  - Systemic lupus erythematosus [Not Recovered/Not Resolved]
  - Parathyroid disorder [Unknown]
  - Peripheral artery occlusion [Not Recovered/Not Resolved]
  - Respiratory syncytial virus infection [Recovering/Resolving]
  - Arterial occlusive disease [Not Recovered/Not Resolved]
  - Aortic aneurysm [Not Recovered/Not Resolved]
  - Rosacea [Unknown]
  - Contusion [Not Recovered/Not Resolved]
  - Nasopharyngitis [Unknown]
  - Stress [Unknown]
  - Diarrhoea [Recovered/Resolved]
  - Infection [Unknown]
  - Abdominal pain [Not Recovered/Not Resolved]
  - Back pain [Not Recovered/Not Resolved]
  - Raynaud^s phenomenon [Unknown]
  - Burning sensation [Not Recovered/Not Resolved]
  - Peripheral swelling [Recovered/Resolved]
  - Neuralgia [Not Recovered/Not Resolved]
  - Gait disturbance [Not Recovered/Not Resolved]
  - Pain in extremity [Not Recovered/Not Resolved]
  - Drug ineffective [Unknown]
  - Product dose omission issue [Unknown]
  - Product complaint [Unknown]

NARRATIVE: CASE EVENT DATE: 20231101
